FAERS Safety Report 24787295 (Version 1)
Quarter: 2024Q4

REPORT INFORMATION
  Report Type: Spontaneous
  Country: GB (occurrence: GB)
  Receive Date: 20241230
  Receipt Date: 20241230
  Transmission Date: 20250114
  Serious: Yes (Other)
  Sender: AUROBINDO
  Company Number: GB-MHRA-MED-202412122046479770-TWZLK

PATIENT
  Sex: Female

DRUGS (1)
  1. GABAPENTIN [Suspect]
     Active Substance: GABAPENTIN
     Indication: Neuralgia
     Dosage: 300 MILLIGRAM [300MG FOR ALL TIMES TAKEN. 3 TIMES A DAY, 2 TIMES A DAY, OR EVEN AT NIGHT]
     Route: 048

REACTIONS (1)
  - Euphoric mood [Not Recovered/Not Resolved]
